FAERS Safety Report 4449873-7 (Version None)
Quarter: 2004Q3

REPORT INFORMATION
  Report Type: 
  Country: None (occurrence: None)
  Receive Date: 20040915
  Receipt Date: 20040902
  Transmission Date: 20050211
  Serious: Yes (Death)
  Sender: FDA-Public Use
  Company Number: US-MERCK-0409USA00293

PATIENT
  Age: 66 Year
  Sex: Male

DRUGS (2)
  1. ZOCOR [Suspect]
     Route: 048
     Dates: end: 20040601
  2. ZOCOR [Suspect]
     Route: 048
     Dates: start: 20040601

REACTIONS (1)
  - MYOCARDIAL INFARCTION [None]
